FAERS Safety Report 10047743 (Version 2)
Quarter: 2014Q1

REPORT INFORMATION
  Report Type: Report from Study
  Country: US (occurrence: US)
  Receive Date: 20140331
  Receipt Date: 20140331
  Transmission Date: 20141002
  Serious: Yes (Other)
  Sender: FDA-Public Use
  Company Number: US-ASTRAZENECA-2013SE27170

PATIENT
  Age: 45 Year
  Sex: Female
  Weight: 77.1 kg

DRUGS (9)
  1. SEROQUEL [Suspect]
     Indication: BIPOLAR DISORDER
     Dosage: 100-400 MILLIGRAMS TWICE DAILY
     Route: 048
     Dates: start: 2003, end: 2009
  2. SEROQUEL [Suspect]
     Indication: HYPOMANIA
     Dosage: 100-400 MILLIGRAMS TWICE DAILY
     Route: 048
     Dates: start: 2003, end: 2009
  3. SEROQUEL [Suspect]
     Indication: MANIA
     Dosage: 100-400 MILLIGRAMS TWICE DAILY
     Route: 048
     Dates: start: 2003, end: 2009
  4. SEROQUEL [Suspect]
     Indication: DEPRESSION
     Dosage: 100-400 MILLIGRAMS TWICE DAILY
     Route: 048
     Dates: start: 2003, end: 2009
  5. SEROQUEL [Suspect]
     Indication: BIPOLAR DISORDER
     Route: 048
     Dates: start: 2009, end: 20140316
  6. SEROQUEL [Suspect]
     Indication: HYPOMANIA
     Route: 048
     Dates: start: 2009, end: 20140316
  7. SEROQUEL [Suspect]
     Indication: MANIA
     Route: 048
     Dates: start: 2009, end: 20140316
  8. SEROQUEL [Suspect]
     Indication: DEPRESSION
     Route: 048
     Dates: start: 2009, end: 20140316
  9. TOPAMAX [Concomitant]
     Indication: CONVULSION
     Dosage: THREE TIMES DAILY
     Dates: start: 2013

REACTIONS (16)
  - Concussion [Unknown]
  - Convulsion [Unknown]
  - Therapeutic response unexpected [Unknown]
  - Bipolar disorder [Unknown]
  - Panic attack [Unknown]
  - Mania [Unknown]
  - Mental disorder [Unknown]
  - Hyperventilation [Unknown]
  - Memory impairment [Unknown]
  - Thinking abnormal [Unknown]
  - Insomnia [Unknown]
  - Drug withdrawal syndrome [Unknown]
  - Somnolence [Unknown]
  - Drug ineffective [Unknown]
  - Intentional drug misuse [Unknown]
  - Off label use [Unknown]
